FAERS Safety Report 11102175 (Version 3)
Quarter: 2015Q3

REPORT INFORMATION
  Report Type: Spontaneous
  Country: JP (occurrence: JP)
  Receive Date: 20150511
  Receipt Date: 20150807
  Transmission Date: 20151125
  Serious: Yes (Death)
  Sender: FDA-Public Use
  Company Number: JP-AMGEN-JPNSP2015045222

PATIENT
  Age: 96 Year
  Sex: Female
  Weight: 35 kg

DRUGS (8)
  1. ROCEPHIN [Concomitant]
     Active Substance: CEFTRIAXONE SODIUM
     Indication: INFECTION
     Dosage: 1 G, QD
     Route: 042
     Dates: start: 20150225, end: 20150309
  2. CRAVIT [Concomitant]
     Active Substance: LEVOFLOXACIN
     Indication: INFECTION
     Dosage: 500 MG, QD
     Route: 042
     Dates: start: 20150325, end: 20150328
  3. MEROPEN KIT [Concomitant]
     Indication: INFECTION
     Dosage: 1 G, BID
     Route: 042
     Dates: start: 20150404, end: 20150408
  4. NESP [Suspect]
     Active Substance: DARBEPOETIN ALFA
     Indication: MYELODYSPLASTIC SYNDROME
     Dosage: 120 MUG, QWK
     Route: 058
     Dates: start: 20150309, end: 20150406
  5. ITRIZOLE [Concomitant]
     Active Substance: ITRACONAZOLE
     Indication: INFECTION PROPHYLAXIS
     Dosage: 50 MG, BID
     Route: 048
     Dates: start: 20150224, end: 20150402
  6. BAKTAR [Concomitant]
     Active Substance: SULFAMETHOXAZOLE\TRIMETHOPRIM
     Indication: INFECTION PROPHYLAXIS
     Dosage: 2 G, BID
     Route: 048
     Dates: start: 20150317, end: 20150402
  7. MEROPEN                            /01250502/ [Concomitant]
     Active Substance: MEROPENEM
     Indication: INFECTION
     Dosage: 1 G, BID
     Route: 042
     Dates: start: 20150404, end: 20150408
  8. NU-LOTAN [Concomitant]
     Active Substance: LOSARTAN POTASSIUM
     Indication: HYPERTENSION
     Dosage: 50 MG, QD
     Route: 048
     Dates: start: 20150224, end: 20150313

REACTIONS (1)
  - Death [Fatal]

NARRATIVE: CASE EVENT DATE: 20150410
